FAERS Safety Report 9411956 (Version 1)
Quarter: 2013Q3

REPORT INFORMATION
  Report Type: Spontaneous
  Country: US (occurrence: None)
  Receive Date: 20130719
  Receipt Date: 20130719
  Transmission Date: 20140515
  Serious: Yes (Hospitalization)
  Sender: FDA-Public Use
  Company Number: None

PATIENT
  Age: 79 Year
  Sex: Female
  Weight: 55.1 kg

DRUGS (1)
  1. DABIGATRAN [Suspect]
     Route: 048

REACTIONS (5)
  - Diarrhoea [None]
  - Faeces discoloured [None]
  - Asthenia [None]
  - Rectal haemorrhage [None]
  - Haemoglobin decreased [None]
